FAERS Safety Report 18187158 (Version 1)
Quarter: 2020Q3

REPORT INFORMATION
  Report Type: Spontaneous
  Country: US (occurrence: US)
  Receive Date: 20200821
  Receipt Date: 20200821
  Transmission Date: 20201103
  Serious: Yes (Hospitalization)
  Sender: FDA-Public Use
  Company Number: None

PATIENT
  Age: 63 Year
  Sex: Female

DRUGS (16)
  1. FOLIC ACID. [Concomitant]
     Active Substance: FOLIC ACID
  2. CALCITRIOL. [Concomitant]
     Active Substance: CALCITRIOL
  3. ASPIRIN. [Concomitant]
     Active Substance: ASPIRIN
  4. ALBUTEROL INHL NEB SOLN [Concomitant]
     Active Substance: ALBUTEROL
  5. ADEMPAS [Suspect]
     Active Substance: RIOCIGUAT
     Indication: PULMONARY ARTERIAL HYPERTENSION
     Route: 048
     Dates: start: 201604
  6. ATROVASTATIN [Concomitant]
     Active Substance: ATORVASTATIN CALCIUM
  7. CYCLOBENZAPRINE. [Concomitant]
     Active Substance: CYCLOBENZAPRINE
  8. VITAMIN D3 [Concomitant]
     Active Substance: CHOLECALCIFEROL
  9. ADEMPAS [Suspect]
     Active Substance: RIOCIGUAT
     Indication: HEART DISEASE CONGENITAL
     Route: 048
     Dates: start: 201604
  10. TRIAMCINOLONE 0.1%  TOPICAL CREAM [Concomitant]
  11. ADEMPAS [Suspect]
     Active Substance: RIOCIGUAT
     Indication: CONNECTIVE TISSUE DISORDER
     Route: 048
     Dates: start: 201604
  12. LOSARTAN. [Concomitant]
     Active Substance: LOSARTAN
  13. WARFARIN [Concomitant]
     Active Substance: WARFARIN
  14. AMLODIPINE [Concomitant]
     Active Substance: AMLODIPINE BESYLATE
  15. FUROSEMIDE. [Concomitant]
     Active Substance: FUROSEMIDE
  16. TRAMADOL. [Concomitant]
     Active Substance: TRAMADOL

REACTIONS (11)
  - Dyspnoea [None]
  - Acute respiratory failure [None]
  - Chronic left ventricular failure [None]
  - Respiratory failure [None]
  - Joint swelling [None]
  - Salt craving [None]
  - Product dose omission issue [None]
  - Dyspnoea exertional [None]
  - Oxygen consumption increased [None]
  - Treatment noncompliance [None]
  - Weight increased [None]

NARRATIVE: CASE EVENT DATE: 20200812
